FAERS Safety Report 4638236-7 (Version None)
Quarter: 2005Q2

REPORT INFORMATION
  Report Type: 
  Country: None (occurrence: None)
  Receive Date: 20050418
  Receipt Date: 20050324
  Transmission Date: 20051028
  Serious: Yes (Hospitalization, Other)
  Sender: FDA-Public Use
  Company Number: USA041183241

PATIENT
  Age: 62 Year
  Sex: Female
  Weight: 52 kg

DRUGS (21)
  1. FORTEO [Suspect]
     Indication: OSTEOPOROSIS
     Dosage: 20 UG/1 DAY
     Dates: start: 20041001, end: 20050222
  2. CALCIUM GLUCONATE [Concomitant]
  3. NEXIUM [Concomitant]
  4. CELEBREX [Concomitant]
  5. XANAX (ALPRAZOLAM DUM) [Concomitant]
  6. NEURONTIN (GABAPENTIN PFIZER) [Concomitant]
  7. XOPENEX [Concomitant]
  8. MUCOMYST (ACETYLCYSTEINE SODIUM) [Concomitant]
  9. ADVAIR DISKUS 100/50 [Concomitant]
  10. PLAVIX [Concomitant]
  11. PLAQUENIL [Concomitant]
  12. CATAPRES [Concomitant]
  13. SYNTHROID [Concomitant]
  14. LOTREL [Concomitant]
  15. MEDROL [Concomitant]
  16. HYDROCHLORZIDE (HYDROCHLOROTHIAZIDE) [Concomitant]
  17. LEXAPRO [Concomitant]
  18. SSKI [Concomitant]
  19. CALCIUM WITH VITAMIN D [Concomitant]
  20. MOBIC [Concomitant]
  21. MULTIVITAMIN [Concomitant]

REACTIONS (14)
  - ARTHRALGIA [None]
  - BONE PAIN [None]
  - CEREBROVASCULAR ACCIDENT [None]
  - CONDITION AGGRAVATED [None]
  - DEVICE FAILURE [None]
  - DIZZINESS [None]
  - DRUG INEFFECTIVE [None]
  - EYE PAIN [None]
  - HEADACHE [None]
  - MUSCLE SPASMS [None]
  - PALPITATIONS [None]
  - PARALYSIS [None]
  - PHARMACEUTICAL PRODUCT COMPLAINT [None]
  - VERTIGO [None]
